FAERS Safety Report 20193089 (Version 4)
Quarter: 2023Q2

REPORT INFORMATION
  Report Type: Report from Study
  Country: CA (occurrence: CA)
  Receive Date: 20211216
  Receipt Date: 20230405
  Transmission Date: 20230722
  Serious: Yes (Other)
  Sender: FDA-Public Use
  Company Number: CA-HLS-202108924

PATIENT
  Age: 66 Year
  Sex: Male

DRUGS (1)
  1. CLOZARIL [Suspect]
     Active Substance: CLOZAPINE
     Indication: Product used for unknown indication
     Route: 048
     Dates: start: 20130417

REACTIONS (4)
  - Neutrophil count decreased [Recovered/Resolved]
  - COVID-19 [Unknown]
  - COVID-19 [Recovering/Resolving]
  - Colon neoplasm [Unknown]

NARRATIVE: CASE EVENT DATE: 20211001
